FAERS Safety Report 4691093-5 (Version None)
Quarter: 2005Q2

REPORT INFORMATION
  Report Type: 
  Country: None (occurrence: None)
  Receive Date: 20050610
  Receipt Date: 20050527
  Transmission Date: 20051028
  Serious: Yes (Hospitalization)
  Sender: FDA-Public Use
  Company Number: CIP05001123

PATIENT
  Age: 69 Year
  Sex: Female

DRUGS (6)
  1. DIDRONEL [Suspect]
     Indication: OSTEOPOROSIS
     Dosage: 200 MG, CYCLIC DAILY, ORAL
     Route: 048
     Dates: start: 20030401, end: 20050507
  2. PREMARIN [Concomitant]
  3. PROVERA [Concomitant]
  4. NU-LOTAN          (LOSARTAN POTASSIUM) [Concomitant]
  5. AMLODIPINE BESYLATE [Concomitant]
  6. SERUM LIPID REDUCING AGENTS [Concomitant]

REACTIONS (5)
  - BACK PAIN [None]
  - CHEST PAIN [None]
  - GASTRIC ULCER HAEMORRHAGE [None]
  - OESOPHAGEAL ULCER [None]
  - SENSATION OF FOREIGN BODY [None]
